FAERS Safety Report 7266546-6 (Version None)
Quarter: 2011Q1

REPORT INFORMATION
  Report Type: 
  Country: None (occurrence: None)
  Receive Date: 20110131
  Receipt Date: 20110121
  Transmission Date: 20110831
  Serious: Yes (Other)
  Sender: FDA-Public Use
  Company Number: US-RB-013332-10

PATIENT
  Age: 23 Year
  Sex: Female

DRUGS (2)
  1. SUBOXONE [Suspect]
     Indication: PRODUCT USED FOR UNKNOWN INDICATION
     Dosage: DOSING INFORMATION UNKNOWN
     Route: 065
  2. SUBOXONE [Suspect]
     Indication: PRODUCT USED FOR UNKNOWN INDICATION
     Dosage: DOSING INFORMATION UNKNOWN
     Route: 065

REACTIONS (13)
  - DEPRESSED MOOD [None]
  - ANXIETY [None]
  - PANIC ATTACK [None]
  - PHARYNGITIS STREPTOCOCCAL [None]
  - INFLUENZA [None]
  - DEPRESSION [None]
  - MALAISE [None]
  - DRUG DEPENDENCE [None]
  - HORDEOLUM [None]
  - HEADACHE [None]
  - NECK MASS [None]
  - OROPHARYNGEAL PAIN [None]
  - PAIN [None]
